FAERS Safety Report 12988374 (Version 2)
Quarter: 2017Q3

REPORT INFORMATION
  Report Type: Spontaneous
  Country: US (occurrence: US)
  Receive Date: 20161130
  Receipt Date: 20170811
  Transmission Date: 20171127
  Serious: Yes (Other)
  Sender: FDA-Public Use
  Company Number: US-CELGENEUS-USA-2016117874

PATIENT
  Sex: Male

DRUGS (3)
  1. THALOMID [Suspect]
     Active Substance: THALIDOMIDE
     Indication: CROHN^S DISEASE
     Dosage: 50MG
     Route: 048
     Dates: start: 20120309
  2. THALOMID [Suspect]
     Active Substance: THALIDOMIDE
     Dosage: 50MG
     Route: 048
     Dates: start: 201609, end: 201702
  3. THALOMID [Suspect]
     Active Substance: THALIDOMIDE
     Dosage: 50MG
     Route: 048
     Dates: start: 201405

REACTIONS (1)
  - Mood swings [Recovering/Resolving]
